FAERS Safety Report 8571285 (Version 5)
Quarter: 2012Q4

REPORT INFORMATION
  Report Type: 
  Country: CA (occurrence: CA)
  Receive Date: 20120521
  Receipt Date: 20121116
  Transmission Date: 20130627
  Serious: Yes (Other)
  Sender: FDA-Public Use
  Company Number: CA-ROCHE-1069135

PATIENT
  Age: 48 None
  Sex: Female

DRUGS (7)
  1. XOLAIR [Suspect]
     Indication: ASTHMA
     Route: 058
     Dates: start: 20120418
  2. ADVAIR [Concomitant]
  3. SINGULAIR [Concomitant]
  4. VENTOLIN [Concomitant]
  5. NASONEX [Concomitant]
  6. WELLBUTRIN [Concomitant]
  7. ZOLOFT [Concomitant]

REACTIONS (6)
  - Asthma [Unknown]
  - Nasopharyngitis [Unknown]
  - Fall [Unknown]
  - Arthralgia [Unknown]
  - Neck pain [Unknown]
  - Pain [Unknown]
